FAERS Safety Report 19086365 (Version 1)
Quarter: 2021Q2

REPORT INFORMATION
  Report Type: Spontaneous
  Country: CA (occurrence: CA)
  Receive Date: 20210402
  Receipt Date: 20210402
  Transmission Date: 20210717
  Serious: Yes (Hospitalization, Other)
  Sender: FDA-Public Use
  Company Number: CA-PFIZER INC-2021069417

PATIENT
  Age: 63 Year
  Sex: Female

DRUGS (2)
  1. ENBREL [Concomitant]
     Active Substance: ETANERCEPT
     Dosage: 1 DF
     Route: 065
  2. XELJANZ XR [Suspect]
     Active Substance: TOFACITINIB CITRATE
     Indication: RHEUMATOID ARTHRITIS
     Dosage: 11 MG, 1X/DAY
     Route: 048
     Dates: start: 20210107

REACTIONS (4)
  - Temporomandibular joint syndrome [Unknown]
  - Abscess [Unknown]
  - Arthralgia [Unknown]
  - Arthritis [Unknown]
